FAERS Safety Report 8594054-9 (Version None)
Quarter: 2012Q3

REPORT INFORMATION
  Report Type: 
  Country: None (occurrence: None)
  Receive Date: 20120814
  Receipt Date: 20120809
  Transmission Date: 20120928
  Serious: Yes (Hospitalization, Disabling, Other)
  Sender: FDA-Public Use
  Company Number: PHHY2012NO049944

PATIENT
  Sex: Male

DRUGS (15)
  1. ATACAND HCT [Concomitant]
     Dosage: 1 DF, QD
     Route: 065
  2. ENOXAPARIN SODIUM [Concomitant]
     Dosage: 80 MG, BID
  3. SIMVASTATIN [Suspect]
     Indication: PRODUCT USED FOR UNKNOWN INDICATION
     Route: 065
     Dates: start: 20110601
  4. LOPERAMIDE [Concomitant]
     Route: 065
  5. ASPIRIN [Concomitant]
     Dosage: 75 MG, QD
  6. REMICADE [Suspect]
     Indication: ANKYLOSING SPONDYLITIS
     Route: 042
     Dates: start: 20080101
  7. ACETAMINOPHEN [Concomitant]
     Route: 065
  8. ATACAND [Concomitant]
     Route: 065
  9. METOPROLOL SUCCINATE [Concomitant]
     Dosage: 100 MG, QD
     Route: 065
  10. PARALGIN FORTE [Concomitant]
     Route: 065
  11. PLAVIX [Concomitant]
     Dosage: 75 MG, QD
  12. PENTASA [Concomitant]
     Dosage: 500 MG, BID
     Route: 065
  13. FUROSEMIDE [Concomitant]
     Dosage: 20 MG, BID
  14. REMICADE [Suspect]
     Route: 042
     Dates: start: 20110608, end: 20110601
  15. ASPIRIN [Concomitant]

REACTIONS (9)
  - SYSTOLIC DYSFUNCTION [None]
  - INTESTINAL STENOSIS [None]
  - AORTIC VALVE INCOMPETENCE [None]
  - DYSPNOEA [None]
  - ATRIAL FIBRILLATION [None]
  - PULMONARY CONGESTION [None]
  - CARDIAC FAILURE [None]
  - DILATATION VENTRICULAR [None]
  - CORONARY ARTERY STENOSIS [None]
